FAERS Safety Report 11733143 (Version 1)
Quarter: 2015Q4

REPORT INFORMATION
  Report Type: Spontaneous
  Country: US (occurrence: US)
  Receive Date: 20151113
  Receipt Date: 20151113
  Transmission Date: 20160304
  Serious: No
  Sender: FDA-Public Use
  Company Number: PHEH2015US023385

PATIENT
  Age: 32 Year
  Sex: Male

DRUGS (2)
  1. TOBI PODHALER [Suspect]
     Active Substance: TOBRAMYCIN
     Indication: CYSTIC FIBROSIS
     Dosage: 4 DF, BID
     Route: 055
     Dates: start: 20141211
  2. VITAMAX [Concomitant]
     Indication: CYSTIC FIBROSIS
     Dosage: 1 DF, BID
     Route: 048
     Dates: start: 20140326

REACTIONS (1)
  - Off label use [Unknown]

NARRATIVE: CASE EVENT DATE: 20150929
